FAERS Safety Report 7801570-3 (Version None)
Quarter: 2011Q4

REPORT INFORMATION
  Report Type: 
  Country: None (occurrence: None)
  Receive Date: 20111006
  Receipt Date: 20111006
  Transmission Date: 20120403
  Serious: Yes (Hospitalization)
  Sender: FDA-Public Use
  Company Number: None

PATIENT
  Age: 82 Year
  Sex: Female

DRUGS (11)
  1. DOCUSATE [Concomitant]
  2. CRESTOR [Concomitant]
  3. PROTONIX [Concomitant]
  4. SUCRALFATE [Concomitant]
  5. ASPIRIN [Suspect]
     Indication: CORONARY ARTERY DISEASE
     Dosage: 81MG DAILY PO CHRONIC
     Route: 048
  6. COREG [Concomitant]
  7. POTASSIUM CHLORIDE [Concomitant]
  8. MECLIZINE [Concomitant]
  9. VITAMIN B-12 [Concomitant]
  10. CALCIUM + VIT D [Concomitant]
  11. FERROUS SULFATE TAB [Concomitant]

REACTIONS (2)
  - IRON DEFICIENCY ANAEMIA [None]
  - GASTRITIS [None]
